FAERS Safety Report 13101801 (Version 1)
Quarter: 2017Q1

REPORT INFORMATION
  Report Type: Spontaneous
  Country: US (occurrence: US)
  Receive Date: 20170110
  Receipt Date: 20170110
  Transmission Date: 20170428
  Serious: No
  Sender: FDA-Public Use
  Company Number: US-PFIZER INC-2017007512

PATIENT
  Age: 61 Year
  Sex: Female
  Weight: 86 kg

DRUGS (11)
  1. XANAX [Concomitant]
     Active Substance: ALPRAZOLAM
     Indication: PANIC DISORDER
  2. ADVIL [Suspect]
     Active Substance: IBUPROFEN
     Indication: ROTATOR CUFF SYNDROME
     Dosage: 400 MG, 3X/DAY (200MG GELCAP, TWO AT A TIME LIKE 3 TIMES A DAY)
     Dates: start: 201612
  3. ADVIL [Suspect]
     Active Substance: IBUPROFEN
     Indication: TREMOR
  4. GABAPENTIN. [Concomitant]
     Active Substance: GABAPENTIN
     Indication: ANXIETY
  5. GABAPENTIN. [Concomitant]
     Active Substance: GABAPENTIN
     Indication: PANIC DISORDER
     Dosage: 600 MG, 1X/DAY (IN THE MORNING)
  6. ATORVASTATIN [Concomitant]
     Active Substance: ATORVASTATIN
     Indication: HYPERTENSION
     Dosage: 10 MG, 1X/DAY
  7. LOSARTAN POTASSIUM. [Concomitant]
     Active Substance: LOSARTAN POTASSIUM
     Indication: HYPERTENSION
     Dosage: 100 MG, 1X/DAY
  8. XANAX [Concomitant]
     Active Substance: ALPRAZOLAM
     Indication: NEUROPATHY PERIPHERAL
     Dosage: 1 MG, 2X/DAY
  9. ADVIL [Suspect]
     Active Substance: IBUPROFEN
     Indication: HEADACHE
  10. ADVIL [Suspect]
     Active Substance: IBUPROFEN
     Indication: FEELING ABNORMAL
  11. ESCITALOPRAM [Concomitant]
     Active Substance: ESCITALOPRAM OXALATE
     Dosage: 20 MG, 1X/DAY (IN THE MORNING)

REACTIONS (2)
  - Product difficult to swallow [Unknown]
  - Dysphagia [Unknown]

NARRATIVE: CASE EVENT DATE: 201612
